FAERS Safety Report 10250026 (Version 2)
Quarter: 2014Q3

REPORT INFORMATION
  Report Type: Spontaneous
  Country: US (occurrence: US)
  Receive Date: 20140620
  Receipt Date: 20140718
  Transmission Date: 20150326
  Serious: Yes (Other)
  Sender: FDA-Public Use
  Company Number: US-BRISTOL-MYERS SQUIBB COMPANY-20589271

PATIENT
  Age: 69 Year
  Sex: Female
  Weight: 98.86 kg

DRUGS (11)
  1. ELIQUIS [Suspect]
     Active Substance: APIXABAN
  2. BYSTOLIC [Concomitant]
     Active Substance: NEBIVOLOL HYDROCHLORIDE
  3. LEVOTHYROXINE [Concomitant]
     Active Substance: LEVOTHYROXINE
  4. FUROSEMIDE. [Concomitant]
     Active Substance: FUROSEMIDE
  5. CALTRATE WITH VITAMIN D [Concomitant]
     Active Substance: CALCIUM CARBONATE\VITAMIN D
  6. MAGNESIUM [Concomitant]
     Active Substance: MAGNESIUM
  7. VITAMIN B12 [Concomitant]
     Active Substance: CYANOCOBALAMIN
  8. POTASSIUM [Concomitant]
     Active Substance: POTASSIUM
  9. VITAMIN D3 [Concomitant]
     Active Substance: CHOLECALCIFEROL
  10. TYLENOL [Concomitant]
     Active Substance: ACETAMINOPHEN
  11. AMLODIPINE [Concomitant]
     Active Substance: AMLODIPINE BESYLATE

REACTIONS (2)
  - Circumstance or information capable of leading to medication error [Unknown]
  - Osteoarthritis [Unknown]

NARRATIVE: CASE EVENT DATE: 20140310
